FAERS Safety Report 4473265-8 (Version None)
Quarter: 2004Q3

REPORT INFORMATION
  Report Type: 
  Country: None (occurrence: None)
  Receive Date: 20040917
  Receipt Date: 20040623
  Transmission Date: 20050211
  Serious: No
  Sender: FDA-Public Use
  Company Number: US-JNJFOC-20040606681

PATIENT
  Age: 50 Year
  Sex: Female
  Weight: 58.9676 kg

DRUGS (4)
  1. ORTHO EVRA [Suspect]
     Indication: MENOPAUSAL DISORDER
     Dosage: 1 DOSE(S), 3 IN 4 WEEK, TRANSDERMAL
     Route: 062
  2. PRAVACHOL [Concomitant]
  3. PROTONIX [Concomitant]
  4. TAMBOCOR [Concomitant]

REACTIONS (1)
  - METRORRHAGIA [None]
